FAERS Safety Report 7315346-7 (Version None)
Quarter: 2011Q1

REPORT INFORMATION
  Report Type: 
  Country: None (occurrence: None)
  Receive Date: 20110225
  Receipt Date: 20110207
  Transmission Date: 20110831
  Serious: Yes (Hospitalization, Other)
  Sender: FDA-Public Use
  Company Number: US-BAYER-201016359NA

PATIENT
  Sex: Female
  Weight: 61.2 kg

DRUGS (5)
  1. YASMIN [Suspect]
     Route: 048
     Dates: start: 20080801
  2. YAZ [Suspect]
     Indication: PRODUCT USED FOR UNKNOWN INDICATION
     Route: 048
     Dates: start: 20040401
  3. YASMIN [Suspect]
     Indication: PRODUCT USED FOR UNKNOWN INDICATION
     Route: 048
     Dates: start: 20040401
  4. YAZ [Suspect]
     Route: 048
     Dates: start: 20080801
  5. ACCUTANE [Concomitant]
     Indication: ACNE
     Dosage: UNK
     Route: 003
     Dates: start: 20070801, end: 20080101

REACTIONS (7)
  - CHEST PAIN [None]
  - PAIN IN JAW [None]
  - DIZZINESS [None]
  - MYOCARDIAL INFARCTION [None]
  - HYPERHIDROSIS [None]
  - PAIN IN EXTREMITY [None]
  - NAUSEA [None]
